FAERS Safety Report 14298824 (Version 1)
Quarter: 2017Q4

REPORT INFORMATION
  Report Type: Spontaneous
  Country: US (occurrence: US)
  Receive Date: 20171216
  Receipt Date: 20171216
  Transmission Date: 20180321
  Serious: Yes (Hospitalization)
  Sender: FDA-Public Use
  Company Number: None

PATIENT
  Age: 75 Year
  Sex: Female
  Weight: 106.5 kg

DRUGS (1)
  1. DOXIL [Suspect]
     Active Substance: DOXORUBICIN HYDROCHLORIDE
     Dates: end: 20171018

REACTIONS (2)
  - Cholelithiasis [None]
  - Cholecystitis [None]

NARRATIVE: CASE EVENT DATE: 20171130
